FAERS Safety Report 24096770 (Version 1)
Quarter: 2024Q3

REPORT INFORMATION
  Report Type: Spontaneous
  Country: US (occurrence: US)
  Receive Date: 20240716
  Receipt Date: 20240716
  Transmission Date: 20241016
  Serious: No
  Sender: SANOFI AVENTIS
  Company Number: US-SANOFI-02130795

PATIENT
  Age: 79 Year
  Sex: Male

DRUGS (2)
  1. TOUJEO [Suspect]
     Active Substance: INSULIN GLARGINE
     Indication: Type 2 diabetes mellitus
     Dosage: VARYING UNITS DEPENDING ON HIS SUGAR LE
     Route: 065
     Dates: start: 2022
  2. TOUJEO [Suspect]
     Active Substance: INSULIN GLARGINE
     Dosage: 30 U, QD

REACTIONS (1)
  - Intentional product misuse [Unknown]
